FAERS Safety Report 10928304 (Version 1)
Quarter: 2015Q1

REPORT INFORMATION
  Report Type: Spontaneous
  Country: US (occurrence: None)
  Receive Date: 20150317
  Receipt Date: 20150317
  Transmission Date: 20150721
  Serious: Yes (Other)
  Sender: FDA-Public Use
  Company Number: None

PATIENT
  Age: 64 Year
  Sex: Male
  Weight: 149.23 kg

DRUGS (2)
  1. CELEBREX [Suspect]
     Active Substance: CELECOXIB
     Indication: MYALGIA
     Dosage: 200MG 1 CAPSULE TWICE DAILY ORALLY
     Route: 048
     Dates: start: 20150220, end: 20150312
  2. CELEBREX [Suspect]
     Active Substance: CELECOXIB
     Indication: ARTHRALGIA
     Dosage: 200MG 1 CAPSULE TWICE DAILY ORALLY
     Route: 048
     Dates: start: 20150220, end: 20150312

REACTIONS (6)
  - Pruritus [None]
  - Product substitution issue [None]
  - Myalgia [None]
  - Condition aggravated [None]
  - Drug ineffective [None]
  - Arthralgia [None]

NARRATIVE: CASE EVENT DATE: 201502
